FAERS Safety Report 21410636 (Version 1)
Quarter: 2022Q4

REPORT INFORMATION
  Report Type: Report from Study
  Country: CO (occurrence: CO)
  Receive Date: 20221005
  Receipt Date: 20221005
  Transmission Date: 20230113
  Serious: Yes (Hospitalization, Other)
  Sender: FDA-Public Use
  Company Number: CO-BAYER-2022A136457

PATIENT
  Age: 54 Year
  Sex: Female

DRUGS (1)
  1. VENTAVIS [Suspect]
     Active Substance: ILOPROST
     Indication: Pulmonary arterial hypertension
     Dosage: 6 DF, QD
     Route: 055
     Dates: start: 20190801, end: 20220916

REACTIONS (3)
  - Hospitalisation [Recovered/Resolved]
  - Multiple sclerosis [Unknown]
  - Limb injury [Unknown]

NARRATIVE: CASE EVENT DATE: 20220201
